FAERS Safety Report 5310364-2 (Version None)
Quarter: 2007Q2

REPORT INFORMATION
  Report Type: 
  Country: None (occurrence: None)
  Receive Date: 20070427
  Receipt Date: 20070417
  Transmission Date: 20071010
  Serious: Yes (Other)
  Sender: FDA-Public Use
  Company Number: US-PFIZER INC-2006150553

PATIENT
  Sex: Male
  Weight: 86.2 kg

DRUGS (4)
  1. VARENICLINE [Suspect]
     Indication: SMOKING CESSATION THERAPY
     Route: 048
     Dates: start: 20061103, end: 20070226
  2. ACETYLSALICYLIC ACID SRT [Concomitant]
  3. VITAMIN E [Concomitant]
  4. CRESTOR [Concomitant]

REACTIONS (5)
  - BLOOD TRIGLYCERIDES INCREASED [None]
  - DRUG HYPERSENSITIVITY [None]
  - HYPERSENSITIVITY [None]
  - RASH GENERALISED [None]
  - WEIGHT INCREASED [None]
